FAERS Safety Report 12092560 (Version 2)
Quarter: 2017Q1

REPORT INFORMATION
  Report Type: Spontaneous
  Country: CH (occurrence: CH)
  Receive Date: 20160219
  Receipt Date: 20170303
  Transmission Date: 20170428
  Serious: Yes (Death, Hospitalization, Other)
  Sender: FDA-Public Use
  Company Number: CH-STRIDES ARCOLAB LIMITED-2016SP000953

PATIENT

DRUGS (6)
  1. TACROLIMUS. [Suspect]
     Active Substance: TACROLIMUS
     Dosage: UNK
     Route: 065
  2. PREDNISOLONE. [Suspect]
     Active Substance: PREDNISOLONE
     Dosage: UNK
  3. TACROLIMUS. [Suspect]
     Active Substance: TACROLIMUS
     Indication: LIVER TRANSPLANT
     Dosage: UNK, UNKNOWN
     Route: 065
  4. PREDNISOLONE. [Suspect]
     Active Substance: PREDNISOLONE
     Indication: LIVER TRANSPLANT
     Dosage: UNK, UNKNOWN
     Route: 065
  5. MYCOPHENOLATE MOFETIL. [Suspect]
     Active Substance: MYCOPHENOLATE MOFETIL
     Indication: LIVER TRANSPLANT
     Dosage: UNK, UNKNOWN
     Route: 065
  6. MYCOPHENOLATE MOFETIL. [Suspect]
     Active Substance: MYCOPHENOLATE MOFETIL
     Dosage: UNK
     Route: 065

REACTIONS (25)
  - Multiple organ dysfunction syndrome [Fatal]
  - Splenomegaly [Unknown]
  - Fatigue [Unknown]
  - Hyperbilirubinaemia [Unknown]
  - Pleural effusion [Unknown]
  - Kaposi^s sarcoma [Unknown]
  - Human herpesvirus 8 infection [Unknown]
  - Pyrexia [Unknown]
  - Leukopenia [Unknown]
  - Hypoalbuminaemia [Unknown]
  - Myalgia [Unknown]
  - Confusional state [Unknown]
  - Ascites [Unknown]
  - Chills [Unknown]
  - Hepatic neoplasm [Unknown]
  - Acute kidney injury [Unknown]
  - Pancytopenia [Unknown]
  - Anaemia [Unknown]
  - Castleman^s disease [Unknown]
  - Thrombocytopenia [Unknown]
  - Histiocytosis haematophagic [Unknown]
  - Lymphadenopathy [Unknown]
  - Salmonellosis [Unknown]
  - Dyspnoea [Unknown]
  - Hyperferritinaemia [Unknown]
